FAERS Safety Report 20925291 (Version 1)
Quarter: 2022Q2

REPORT INFORMATION
  Report Type: Spontaneous
  Country: US (occurrence: US)
  Receive Date: 20220607
  Receipt Date: 20220607
  Transmission Date: 20220721
  Serious: Yes (Hospitalization)
  Sender: FDA-Public Use
  Company Number: US-BRISTOL-MYERS SQUIBB COMPANY-2022-035703

PATIENT
  Age: 75 Year
  Sex: Male

DRUGS (1)
  1. REVLIMID [Suspect]
     Active Substance: LENALIDOMIDE
     Indication: Product used for unknown indication
     Dosage: TAKE 1 CAPSULE BY MOUTH EVERY DAY WITH WATER ON DAYS 1-21, THEN OFF FOR 7 DAYS. DO NOT BREAK, CHEW O
     Route: 048
     Dates: start: 20210331

REACTIONS (3)
  - Renal disorder [Unknown]
  - Gait disturbance [Unknown]
  - Post procedural infection [Unknown]
